FAERS Safety Report 9723179 (Version 1)
Quarter: 2013Q4

REPORT INFORMATION
  Report Type: Spontaneous
  Country: US (occurrence: None)
  Receive Date: 20131127
  Receipt Date: 20131127
  Transmission Date: 20140711
  Serious: Yes (Other)
  Sender: FDA-Public Use
  Company Number: None

PATIENT
  Age: 84 Year
  Sex: Female

DRUGS (9)
  1. PROLIA [Suspect]
     Indication: OSTEOPOROSIS PROPHYLAXIS
     Dosage: 2XYEAR, BY INJECTION
     Dates: start: 201301, end: 201307
  2. CLOPIDOGREL [Concomitant]
  3. ASPIRIN [Concomitant]
  4. SIMVASTATIN [Concomitant]
  5. HYDROCODON-ACETAMINOPHEN [Concomitant]
  6. VITAMIN C [Concomitant]
  7. SUBLINGUAL B-12 [Concomitant]
  8. VIT D3 [Concomitant]
  9. TYLENOL EXTRA STRENGTH [Concomitant]

REACTIONS (8)
  - Rash erythematous [None]
  - Ulcer [None]
  - Thermal burn [None]
  - Joint swelling [None]
  - Stomatitis [None]
  - Bone pain [None]
  - Back pain [None]
  - Feeling abnormal [None]
